FAERS Safety Report 20045311 (Version 1)
Quarter: 2021Q4

REPORT INFORMATION
  Report Type: Spontaneous
  Country: CN (occurrence: CN)
  Receive Date: 20211108
  Receipt Date: 20211108
  Transmission Date: 20220303
  Serious: Yes (Hospitalization, Other)
  Sender: FDA-Public Use
  Company Number: CN-ASTELLAS-2021US042156

PATIENT
  Age: 45 Year
  Sex: Male

DRUGS (21)
  1. TACROLIMUS [Interacting]
     Active Substance: TACROLIMUS
     Indication: Liver transplant rejection
     Dosage: 2 MG, EVERY 12 HOURS (DAY 7)
     Route: 048
     Dates: start: 20200602
  2. TACROLIMUS [Interacting]
     Active Substance: TACROLIMUS
     Dosage: 3 MG, EVERY 12 HOURS (DAY 9)
     Route: 048
     Dates: start: 20200604
  3. TACROLIMUS [Interacting]
     Active Substance: TACROLIMUS
     Dosage: 3 MG, ONCE DAILY  (DAY 10)
     Route: 048
     Dates: start: 20200605
  4. TACROLIMUS [Interacting]
     Active Substance: TACROLIMUS
     Dosage: 3 MG, EVERY 12 HOURS (DAY 12)
     Route: 048
     Dates: start: 20200607
  5. TACROLIMUS [Interacting]
     Active Substance: TACROLIMUS
     Dosage: 3.5 MG, EVERY 12 HOURS (DAY 42)
     Route: 048
     Dates: start: 20200707
  6. TACROLIMUS [Interacting]
     Active Substance: TACROLIMUS
     Dosage: 3 MG, EVERY 12 HOURS (DAY 44)
     Route: 048
     Dates: start: 20200712
  7. METHYLPREDNISOLONE SODIUM SUCCINATE [Interacting]
     Active Substance: METHYLPREDNISOLONE SODIUM SUCCINATE
     Indication: Prophylaxis against transplant rejection
     Dosage: 160 MG, ONCE DAILY (DAY 1)
     Route: 041
     Dates: start: 20200527
  8. METHYLPREDNISOLONE SODIUM SUCCINATE [Interacting]
     Active Substance: METHYLPREDNISOLONE SODIUM SUCCINATE
     Route: 041
     Dates: start: 202005
  9. METHYLPREDNISOLONE SODIUM SUCCINATE [Interacting]
     Active Substance: METHYLPREDNISOLONE SODIUM SUCCINATE
     Dosage: 440 MG, UNKNOWN FREQ. (DAY 9)
     Route: 041
     Dates: start: 20200604
  10. METHYLPREDNISOLONE SODIUM SUCCINATE [Interacting]
     Active Substance: METHYLPREDNISOLONE SODIUM SUCCINATE
     Dosage: 300 MG, UNKNOWN FREQ. (DAY 10)
     Route: 041
     Dates: start: 20200605
  11. METHYLPREDNISOLONE SODIUM SUCCINATE [Interacting]
     Active Substance: METHYLPREDNISOLONE SODIUM SUCCINATE
     Dosage: 240 MG, UNKNOWN FREQ. (DAY 11)
     Route: 041
     Dates: start: 20200606
  12. METHYLPREDNISOLONE SODIUM SUCCINATE [Interacting]
     Active Substance: METHYLPREDNISOLONE SODIUM SUCCINATE
     Dosage: 200 MG, UNKNOWN FREQ. (DAY 12, DAILY DOSE REDUCTION)
     Route: 041
     Dates: start: 20200607
  13. MIDAZOLAM HYDROCHLORIDE [Interacting]
     Active Substance: MIDAZOLAM HYDROCHLORIDE
     Indication: Sedation
     Dosage: 60 MG, UNKNOWN FREQ. (DAY 9)
     Route: 041
     Dates: start: 20200604
  14. MIDAZOLAM HYDROCHLORIDE [Interacting]
     Active Substance: MIDAZOLAM HYDROCHLORIDE
     Indication: Tracheostomy
  15. MEROPENEM [Concomitant]
     Active Substance: MEROPENEM
     Indication: Infection prophylaxis
     Dosage: 0.5 G, EVERY 8 HOURS (DAY 1)
     Route: 041
     Dates: start: 20200527
  16. MEROPENEM [Concomitant]
     Active Substance: MEROPENEM
     Dosage: 1 G, UNKNOWN FREQ. (DAY 3)
     Route: 041
     Dates: start: 20200529
  17. MEROPENEM [Concomitant]
     Active Substance: MEROPENEM
     Dosage: 2 G, UNKNOWN FREQ. (DAY 5)
     Route: 041
     Dates: start: 20200531
  18. MEROPENEM [Concomitant]
     Active Substance: MEROPENEM
     Dosage: 2 G, EVERY 8 HOURS (DAY 9)
     Route: 041
     Dates: start: 20200604
  19. TEICOPLANIN [Concomitant]
     Active Substance: TEICOPLANIN
     Indication: Infection prophylaxis
     Dosage: 400 MG, ONCE DAILY (DAY 1)
     Route: 041
     Dates: start: 20200527
  20. TEICOPLANIN [Concomitant]
     Active Substance: TEICOPLANIN
     Dosage: 400 MG, ONCE DAILY (DAY 3)
     Route: 041
     Dates: start: 20200529
  21. BASILIXIMAB [Concomitant]
     Active Substance: BASILIXIMAB
     Indication: Prophylaxis against transplant rejection
     Dosage: 20 MG, UNKNOWN FREQ. (DAY 1)
     Route: 041
     Dates: start: 20200527

REACTIONS (9)
  - Pathogen resistance [Unknown]
  - Pneumonia klebsiella [Unknown]
  - Candida pneumonia [Unknown]
  - Pneumonia acinetobacter [Unknown]
  - Bacterial infection [Unknown]
  - Pseudomonal sepsis [Unknown]
  - Infection [Unknown]
  - Immunosuppressant drug level increased [Unknown]
  - Drug interaction [Unknown]

NARRATIVE: CASE EVENT DATE: 20200531
